FAERS Safety Report 15190922 (Version 1)
Quarter: 2018Q3

REPORT INFORMATION
  Report Type: Spontaneous
  Country: GB (occurrence: GB)
  Receive Date: 20180724
  Receipt Date: 20180724
  Transmission Date: 20181010
  Serious: Yes (Life-Threatening, Disabling, Other)
  Sender: FDA-Public Use
  Company Number: GB-ASTRAZENECA-2018SE91472

PATIENT
  Age: 46 Year
  Sex: Female
  Weight: 65.3 kg

DRUGS (3)
  1. OMEPRAZOLE. [Suspect]
     Active Substance: OMEPRAZOLE
     Indication: HIATUS HERNIA
     Dosage: FOR 18 MONTHS. BUT STILL 40MG JAN TO MARCH 2017 AND JANUARY AND FEBRUARY 2018. UNKNOWN
     Route: 048
     Dates: start: 20150412, end: 20180302
  2. OMEPRAZOLE. [Suspect]
     Active Substance: OMEPRAZOLE
     Indication: HIATUS HERNIA
     Dosage: 20.0MG UNKNOWN
     Route: 048
     Dates: start: 201610
  3. ACETYLSALICYLIC ACID [Concomitant]
     Active Substance: ASPIRIN
     Dosage: 75.0MG UNKNOWN

REACTIONS (10)
  - Magnesium deficiency [Recovering/Resolving]
  - Feeling abnormal [Recovering/Resolving]
  - Tic [Recovering/Resolving]
  - Vertigo [Recovering/Resolving]
  - Sensory disturbance [Recovering/Resolving]
  - Hypoaesthesia [Recovering/Resolving]
  - Paraesthesia [Recovering/Resolving]
  - Tremor [Recovering/Resolving]
  - Pain in extremity [Recovering/Resolving]
  - Muscle spasms [Unknown]

NARRATIVE: CASE EVENT DATE: 2016
